FAERS Safety Report 10234567 (Version 1)
Quarter: 2014Q2

REPORT INFORMATION
  Report Type: Spontaneous
  Country: US (occurrence: US)
  Receive Date: 20140613
  Receipt Date: 20140613
  Transmission Date: 20141212
  Serious: No
  Sender: FDA-Public Use
  Company Number: US-009507513-1406USA000812

PATIENT
  Age: 35 Year
  Sex: Male

DRUGS (4)
  1. LISINOPRIL [Suspect]
     Indication: CARDIAC FAILURE
     Route: 048
  2. CARVEDILOL [Concomitant]
  3. DIGOXIN [Concomitant]
  4. SPIRONOLACTONE [Concomitant]

REACTIONS (1)
  - Hypotension [Unknown]
